FAERS Safety Report 9219851 (Version 1)
Quarter: 2013Q2

REPORT INFORMATION
  Report Type: Report from Study
  Country: JP (occurrence: JP)
  Receive Date: 20130409
  Receipt Date: 20130409
  Transmission Date: 20140414
  Serious: Yes (Hospitalization, Other)
  Sender: FDA-Public Use
  Company Number: JP-JNJFOC-20120903745

PATIENT
  Age: 87 Year
  Sex: Female
  Weight: 39 kg

DRUGS (21)
  1. DUROTEP MT [Suspect]
     Indication: PAIN
     Route: 062
     Dates: start: 20120305, end: 20120409
  2. DUROTEP MT [Suspect]
     Indication: PAIN
     Route: 062
     Dates: start: 20120130, end: 20120304
  3. DUROTEP MT [Suspect]
     Indication: PAIN
     Route: 062
     Dates: start: 20111031, end: 20120129
  4. DUROTEP MT [Suspect]
     Indication: PAIN
     Route: 062
     Dates: start: 20110905, end: 20111031
  5. CYMBALTA [Concomitant]
     Indication: PAIN
     Route: 048
     Dates: start: 20120130, end: 20120402
  6. CALONAL [Concomitant]
     Indication: PAIN
     Route: 048
     Dates: start: 20110905
  7. CALONAL [Concomitant]
     Indication: PAIN
     Route: 048
     Dates: end: 20120305
  8. TAKEPRON [Concomitant]
     Indication: PRODUCT USED FOR UNKNOWN INDICATION
     Route: 048
     Dates: start: 20100607
  9. ALFAROL [Concomitant]
     Indication: PRODUCT USED FOR UNKNOWN INDICATION
     Route: 048
     Dates: start: 20100607
  10. ALDACTONE A [Concomitant]
     Indication: HYPERTENSION
     Route: 048
     Dates: start: 20100611, end: 20120409
  11. ZYRTEC [Concomitant]
     Indication: PRODUCT USED FOR UNKNOWN INDICATION
     Route: 048
     Dates: start: 20100607, end: 20120305
  12. KREMEZIN [Concomitant]
     Indication: RENAL FAILURE
     Route: 048
     Dates: start: 20100618, end: 20120305
  13. ARTIST [Concomitant]
     Indication: PRODUCT USED FOR UNKNOWN INDICATION
     Route: 048
     Dates: start: 20100623
  14. LAC-B [Concomitant]
     Indication: PRODUCT USED FOR UNKNOWN INDICATION
     Route: 048
     Dates: start: 20110502
  15. FERROMIA [Concomitant]
     Indication: IRON DEFICIENCY ANAEMIA
     Route: 048
     Dates: start: 20110502, end: 20120305
  16. ALOSITOL [Concomitant]
     Indication: PRODUCT USED FOR UNKNOWN INDICATION
     Route: 048
     Dates: start: 20110704
  17. LOXONIN [Concomitant]
     Indication: PAIN
     Route: 061
     Dates: start: 20101108
  18. MEXITIL [Concomitant]
     Indication: PRODUCT USED FOR UNKNOWN INDICATION
     Route: 048
     Dates: start: 20111031
  19. NITROPEN [Concomitant]
     Indication: PRODUCT USED FOR UNKNOWN INDICATION
     Route: 060
     Dates: start: 20110314
  20. LASIX [Concomitant]
     Indication: PRODUCT USED FOR UNKNOWN INDICATION
     Route: 048
     Dates: start: 20111226, end: 20120409
  21. TRAMCET [Concomitant]
     Indication: PAIN
     Dosage: 4 DF X 1 PER DAY
     Route: 048
     Dates: start: 20120305, end: 20120312

REACTIONS (14)
  - Ventricular extrasystoles [Recovered/Resolved]
  - Spinal fracture [Not Recovered/Not Resolved]
  - Metastases to bone [Not Recovered/Not Resolved]
  - Spinal cord injury [Unknown]
  - Fall [Unknown]
  - Oedema peripheral [Unknown]
  - Somnolence [Recovered/Resolved]
  - Drug intolerance [Unknown]
  - Nausea [Recovered/Resolved]
  - Depression [Unknown]
  - Somnolence [Recovering/Resolving]
  - Pain [Unknown]
  - Spinal osteoarthritis [Unknown]
  - Osteoarthritis [Unknown]
